FAERS Safety Report 22044390 (Version 1)
Quarter: 2023Q1

REPORT INFORMATION
  Report Type: Spontaneous
  Country: US (occurrence: None)
  Receive Date: 20230227
  Receipt Date: 20230227
  Transmission Date: 20230418
  Serious: Yes (Hospitalization)
  Sender: FDA-Public Use
  Company Number: None

PATIENT
  Sex: Female

DRUGS (19)
  1. AMBRISENTAN [Suspect]
     Active Substance: AMBRISENTAN
     Indication: Pulmonary arterial hypertension
     Dosage: FREQUENCY : DAILY;?
     Route: 048
  2. LEVOTHYROXINE SODIUM [Concomitant]
     Active Substance: LEVOTHYROXINE SODIUM
  3. WARFARIN SODIUM [Concomitant]
     Active Substance: WARFARIN SODIUM
  4. CINACALCET HYDROCHLORIDE [Concomitant]
     Active Substance: CINACALCET HYDROCHLORIDE
  5. VITAMIN C CR [Concomitant]
  6. PREDNISONE [Concomitant]
     Active Substance: PREDNISONE
  7. VITAMIN B6 [Concomitant]
     Active Substance: PYRIDOXINE HYDROCHLORIDE
  8. MYCOPHENOLIC ACID [Concomitant]
     Active Substance: MYCOPHENOLIC ACID
  9. CREON [Concomitant]
     Active Substance: PANCRELIPASE AMYLASE\PANCRELIPASE LIPASE\PANCRELIPASE PROTEASE
  10. FLUDROCORTISONE ACETATE [Concomitant]
     Active Substance: FLUDROCORTISONE ACETATE
  11. MAGNESIUM [Concomitant]
     Active Substance: MAGNESIUM
  12. CINACALCET HYDROCHLORIDE [Concomitant]
     Active Substance: CINACALCET HYDROCHLORIDE
  13. AMIODARONE HYDROCHLORIDE [Concomitant]
     Active Substance: AMIODARONE HYDROCHLORIDE
  14. IONIL [Concomitant]
  15. VITAMIN E [Concomitant]
     Active Substance: .ALPHA.-TOCOPHEROL
  16. TACROLIMUS [Concomitant]
     Active Substance: TACROLIMUS
  17. ZINC [Concomitant]
     Active Substance: ZINC
  18. VITAMIN B12 [Concomitant]
     Active Substance: CYANOCOBALAMIN
  19. MAGNESIUM [Concomitant]
     Active Substance: MAGNESIUM

REACTIONS (1)
  - Hospitalisation [None]
